FAERS Safety Report 4347094-X (Version None)
Quarter: 2004Q2

REPORT INFORMATION
  Report Type: 
  Country: None (occurrence: None)
  Receive Date: 20040426
  Receipt Date: 20040422
  Transmission Date: 20050107
  Serious: Yes (Other)
  Sender: FDA-Public Use
  Company Number: DE-GLAXOSMITHKLINE-D0043624A

PATIENT
  Sex: Female

DRUGS (2)
  1. RANITIDINE [Suspect]
     Route: 065
  2. DIANE [Concomitant]
     Indication: CONTRACEPTION
     Dosage: 1TAB SINGLE DOSE
     Route: 048
     Dates: start: 19920101

REACTIONS (4)
  - ALANINE AMINOTRANSFERASE INCREASED [None]
  - ASPARTATE AMINOTRANSFERASE INCREASED [None]
  - GAMMA-GLUTAMYLTRANSFERASE INCREASED [None]
  - LIPASE INCREASED [None]
